FAERS Safety Report 8168087-0 (Version None)
Quarter: 2012Q1

REPORT INFORMATION
  Report Type: 
  Country: None (occurrence: None)
  Receive Date: 20120227
  Receipt Date: 20120214
  Transmission Date: 20120608
  Serious: Yes (Other)
  Sender: FDA-Public Use
  Company Number: PHFR2012GB001164

PATIENT

DRUGS (1)
  1. FEMARA [Suspect]

REACTIONS (1)
  - EAR, NOSE AND THROAT EXAMINATION ABNORMAL [None]
